FAERS Safety Report 5934460-1 (Version None)
Quarter: 2008Q4

REPORT INFORMATION
  Report Type: 
  Country: None (occurrence: None)
  Receive Date: 20081029
  Receipt Date: 20081021
  Transmission Date: 20090506
  Serious: Yes (Other)
  Sender: FDA-Public Use
  Company Number: US-PFIZER INC-2005121358

PATIENT
  Sex: Female

DRUGS (1)
  1. DETROL LA [Suspect]
     Indication: ILL-DEFINED DISORDER
     Route: 065

REACTIONS (5)
  - ABDOMINAL PAIN [None]
  - DRUG INEFFECTIVE [None]
  - GLAUCOMA [None]
  - POLLAKIURIA [None]
  - URINARY TRACT DISORDER [None]
